FAERS Safety Report 14295373 (Version 2)
Quarter: 2018Q1

REPORT INFORMATION
  Report Type: Spontaneous
  Country: US (occurrence: US)
  Receive Date: 20171218
  Receipt Date: 20180212
  Transmission Date: 20180509
  Serious: No
  Sender: FDA-Public Use
  Company Number: US-PFIZER INC-2017534680

PATIENT
  Age: 63 Year
  Sex: Male
  Weight: 120.2 kg

DRUGS (3)
  1. PREDNISONE. [Suspect]
     Active Substance: PREDNISONE
     Dosage: UNK
  2. XALKORI [Suspect]
     Active Substance: CRIZOTINIB
     Indication: LUNG ADENOCARCINOMA STAGE IV
     Dosage: 250 MG, 2X/DAY
     Route: 048
     Dates: start: 201704, end: 201712
  3. OMEPRAZOLE. [Suspect]
     Active Substance: OMEPRAZOLE
     Dosage: 40 MG, UNK

REACTIONS (11)
  - Oedema peripheral [Not Recovered/Not Resolved]
  - Nausea [Recovering/Resolving]
  - Blood calcium decreased [Unknown]
  - Weight increased [Unknown]
  - Pneumonitis [Unknown]
  - Fluid retention [Unknown]
  - Constipation [Unknown]
  - Sputum discoloured [Unknown]
  - Vomiting [Recovering/Resolving]
  - Abdominal discomfort [Unknown]
  - Blood potassium decreased [Recovering/Resolving]

NARRATIVE: CASE EVENT DATE: 201704
